FAERS Safety Report 11612105 (Version 2)
Quarter: 2017Q2

REPORT INFORMATION
  Report Type: Report from Study
  Country: None (occurrence: US)
  Receive Date: 20151008
  Receipt Date: 20170425
  Transmission Date: 20170829
  Serious: Yes (Hospitalization)
  Sender: FDA-Public Use
  Company Number: US-ABBVIE-15K-163-1474382-00

PATIENT
  Age: 33 Year
  Sex: Male
  Weight: 90.8 kg

DRUGS (5)
  1. RANITIDINE. [Concomitant]
     Active Substance: RANITIDINE
     Indication: PRODUCT USED FOR UNKNOWN INDICATION
  2. CHOLESTYRAMINE. [Concomitant]
     Active Substance: CHOLESTYRAMINE
     Indication: PRODUCT USED FOR UNKNOWN INDICATION
  3. HUMIRA [Suspect]
     Active Substance: ADALIMUMAB
     Route: 058
     Dates: start: 201509
  4. ZYRTEC [Concomitant]
     Active Substance: CETIRIZINE HYDROCHLORIDE
     Indication: PRODUCT USED FOR UNKNOWN INDICATION
  5. HUMIRA [Suspect]
     Active Substance: ADALIMUMAB
     Indication: CROHN^S DISEASE
     Dosage: LOADING
     Route: 065
     Dates: start: 20150917, end: 20150917

REACTIONS (2)
  - Small intestinal obstruction [Recovering/Resolving]
  - Intestinal obstruction [Recovered/Resolved]

NARRATIVE: CASE EVENT DATE: 20150924
